FAERS Safety Report 9525100 (Version 2)
Quarter: 2013Q4

REPORT INFORMATION
  Report Type: Spontaneous
  Country: US (occurrence: US)
  Receive Date: 20130916
  Receipt Date: 20131122
  Transmission Date: 20140711
  Serious: Yes (Hospitalization)
  Sender: FDA-Public Use
  Company Number: US-BAYER-2013-111218

PATIENT
  Age: 23 Year
  Sex: Female
  Weight: 66.67 kg

DRUGS (3)
  1. MIRENA [Suspect]
     Indication: CONTRACEPTION
     Dosage: 20 MCG/24HR, CONT
     Route: 015
     Dates: start: 20090525, end: 20120615
  2. ZOLOFT [Concomitant]
     Indication: DEPRESSION
     Dosage: UNK
     Dates: start: 2005
  3. NEURONTIN [Concomitant]
     Indication: NERVE INJURY
     Dosage: UNK
     Dates: start: 2006

REACTIONS (6)
  - Embedded device [None]
  - Injury [None]
  - Pain [None]
  - Emotional distress [None]
  - Device misuse [None]
  - Device issue [None]
